FAERS Safety Report 11752346 (Version 1)
Quarter: 2015Q4

REPORT INFORMATION
  Report Type: Spontaneous
  Country: US (occurrence: US)
  Receive Date: 20151118
  Receipt Date: 20151118
  Transmission Date: 20160304
  Serious: Yes (Hospitalization, Other)
  Sender: FDA-Public Use
  Company Number: US-AMGEN-USASP2015121310

PATIENT
  Age: 69 Year
  Sex: Male

DRUGS (3)
  1. EPOGEN [Suspect]
     Active Substance: ERYTHROPOIETIN
     Dosage: UNK UNK, MONTHLY DOSES
     Route: 065
  2. EPOGEN [Suspect]
     Active Substance: ERYTHROPOIETIN
     Indication: ANAEMIA
     Dosage: UNK UNK, UNK
     Route: 065
  3. EPOGEN [Suspect]
     Active Substance: ERYTHROPOIETIN
     Dosage: 10,000 UNITS, WEEKLY
     Route: 065

REACTIONS (10)
  - Sepsis [Unknown]
  - Transfusion [Unknown]
  - Incorrect product storage [Unknown]
  - Unevaluable event [Unknown]
  - Infection [Unknown]
  - Renal transplant [Unknown]
  - Cardiac failure congestive [Unknown]
  - Cerebral haemorrhage [Unknown]
  - Cystitis [Unknown]
  - Dyspnoea [Unknown]
